FAERS Safety Report 10301366 (Version 2)
Quarter: 2014Q3

REPORT INFORMATION
  Report Type: Report from Study
  Country: TR (occurrence: TR)
  Receive Date: 20140714
  Receipt Date: 20140801
  Transmission Date: 20150326
  Serious: Yes (Other)
  Sender: FDA-Public Use
  Company Number: TR-US-EMD SERONO, INC.-7305202

PATIENT
  Sex: Female
  Weight: 77 kg

DRUGS (2)
  1. PAROL [Suspect]
     Active Substance: ACETAMINOPHEN
     Indication: ANALGESIC THERAPY
  2. REBIF [Suspect]
     Active Substance: INTERFERON BETA-1A
     Indication: MULTIPLE SCLEROSIS

REACTIONS (3)
  - Cataract [Recovered/Resolved]
  - Cyst [Not Recovered/Not Resolved]
  - Nasal cyst [Recovered/Resolved]

NARRATIVE: CASE EVENT DATE: 201307
